FAERS Safety Report 23738787 (Version 1)
Quarter: 2024Q2

REPORT INFORMATION
  Report Type: Spontaneous
  Country: ZA (occurrence: ZA)
  Receive Date: 20240413
  Receipt Date: 20240413
  Transmission Date: 20240716
  Serious: Yes (Death)
  Sender: FDA-Public Use
  Company Number: ZA-CELLTRION INC.-2022ZA006130

PATIENT

DRUGS (1)
  1. INFLIXIMAB [Suspect]
     Active Substance: INFLIXIMAB
     Indication: Crohn^s disease
     Dosage: 300 MG EVERY 8 WEEKLY (EVERY 8 WEEKS)
     Route: 042

REACTIONS (2)
  - Death [Fatal]
  - Malaise [Recovering/Resolving]

NARRATIVE: CASE EVENT DATE: 20220504
